FAERS Safety Report 21534306 (Version 1)
Quarter: 2022Q4

REPORT INFORMATION
  Report Type: Spontaneous
  Country: LT (occurrence: LT)
  Receive Date: 20221101
  Receipt Date: 20221101
  Transmission Date: 20230113
  Serious: Yes (Other)
  Sender: FDA-Public Use
  Company Number: LT-NOVARTISPH-NVSC2022LT242010

PATIENT
  Age: 73 Year
  Sex: Male
  Weight: 80 kg

DRUGS (3)
  1. METFORMIN [Suspect]
     Active Substance: METFORMIN HYDROCHLORIDE
     Indication: Product used for unknown indication
     Dosage: 1500 MG, DAILY
     Route: 065
  2. INSULIN GLARGINE [Suspect]
     Active Substance: INSULIN GLARGINE
     Indication: Type 2 diabetes mellitus
     Dosage: 10 IU, DAILY
     Route: 065
     Dates: start: 20220901
  3. GLICLAZIDE [Concomitant]
     Active Substance: GLICLAZIDE
     Indication: Product used for unknown indication
     Dosage: 120 MG, DAILY
     Route: 065
     Dates: start: 202207

REACTIONS (12)
  - Pancreatic carcinoma metastatic [Unknown]
  - Hydrothorax [Unknown]
  - Ascites [Unknown]
  - Blood glucose increased [Unknown]
  - Discomfort [Not Recovered/Not Resolved]
  - Weight decreased [Unknown]
  - Glycosylated haemoglobin increased [Unknown]
  - Hepatomegaly [Unknown]
  - Hypoglycaemia [Recovered/Resolved]
  - Decreased appetite [Unknown]
  - Abdominal pain upper [Not Recovered/Not Resolved]
  - Nausea [Not Recovered/Not Resolved]
